FAERS Safety Report 5664917-2 (Version None)
Quarter: 2008Q1

REPORT INFORMATION
  Report Type: 
  Country: None (occurrence: None)
  Receive Date: 20080314
  Receipt Date: 20080304
  Transmission Date: 20080703
  Serious: Yes (Hospitalization)
  Sender: FDA-Public Use
  Company Number: FR-GILEAD-2008-0014899

PATIENT
  Sex: Male

DRUGS (7)
  1. VIREAD [Suspect]
     Indication: HIV INFECTION
     Route: 048
     Dates: start: 20060627, end: 20070701
  2. VIREAD [Suspect]
     Route: 048
     Dates: start: 20070701, end: 20070830
  3. REYATAZ [Suspect]
     Indication: HIV INFECTION
     Route: 048
     Dates: start: 20070711, end: 20070831
  4. PROFENID [Suspect]
     Route: 048
     Dates: start: 20070831, end: 20070901
  5. EMTRIVA [Concomitant]
     Indication: HIV INFECTION
     Route: 048
     Dates: start: 20060830
  6. NORVIR [Concomitant]
     Route: 048
     Dates: start: 20060308
  7. TENORMIN [Concomitant]
     Indication: HYPERTENSION
     Route: 048

REACTIONS (2)
  - NEPHROLITHIASIS [None]
  - RENAL IMPAIRMENT [None]
